FAERS Safety Report 10606558 (Version 1)
Quarter: 2014Q4

REPORT INFORMATION
  Report Type: Spontaneous
  Country: JP (occurrence: JP)
  Receive Date: 20141125
  Receipt Date: 20141125
  Transmission Date: 20150529
  Serious: Yes (Death, Other)
  Sender: FDA-Public Use
  Company Number: PHHY2014JP152927

PATIENT
  Age: 48 Year
  Sex: Male

DRUGS (10)
  1. CYCLOPHOSPHAMIDE. [Suspect]
     Active Substance: CYCLOPHOSPHAMIDE
     Indication: STEM CELL TRANSPLANT
     Dosage: 60 MG/KG, UNK
     Route: 065
  2. HEPARIN [Concomitant]
     Active Substance: HEPARIN SODIUM
     Indication: PRODUCT USED FOR UNKNOWN INDICATION
     Dosage: 1800 U, UNK
     Route: 065
  3. THROMBOMODULIN ALFA RECOMBINANT [Concomitant]
     Indication: VENOOCCLUSIVE LIVER DISEASE
     Dosage: 380 IU/KG, QD
     Route: 065
  4. CICLOSPORIN [Suspect]
     Active Substance: CYCLOSPORINE
     Indication: PRODUCT USED FOR UNKNOWN INDICATION
     Route: 065
  5. METHOTREXATE [Suspect]
     Active Substance: METHOTREXATE
     Indication: PROPHYLAXIS AGAINST GRAFT VERSUS HOST DISEASE
     Route: 065
  6. GRANULOCYTE STIMULATING FACTORS [Suspect]
     Active Substance: GRANULOCYTE COLONY-STIMULATING FACTOR NOS
     Indication: PRODUCT USED FOR UNKNOWN INDICATION
     Route: 065
  7. URSODEOXYCHOLIC ACID [Suspect]
     Active Substance: URSODIOL
     Indication: HEPATITIS
     Dosage: 600 MG, QD
     Route: 065
  8. TACROLIMUS. [Suspect]
     Active Substance: TACROLIMUS
     Indication: PROPHYLAXIS AGAINST GRAFT VERSUS HOST DISEASE
     Route: 065
  9. BUSULFAN [Suspect]
     Active Substance: BUSULFAN
     Indication: STEM CELL TRANSPLANT
     Dosage: 0.8 MG/KG, UNK
     Route: 065
  10. ANTITHYMOCYTE IMMUNOGLOBULIN [Suspect]
     Active Substance: THYMOCYTE IMMUNE GLOBULIN NOS
     Indication: PRODUCT USED FOR UNKNOWN INDICATION
     Route: 065

REACTIONS (4)
  - Chronic graft versus host disease [Unknown]
  - Pancytopenia [Unknown]
  - Septic shock [Fatal]
  - Drug ineffective [Unknown]
